FAERS Safety Report 13230510 (Version 1)
Quarter: 2017Q1

REPORT INFORMATION
  Report Type: Spontaneous
  Country: JP (occurrence: JP)
  Receive Date: 20170214
  Receipt Date: 20170214
  Transmission Date: 20170428
  Serious: Yes (Other)
  Sender: FDA-Public Use
  Company Number: JP-PFIZER INC-2017048085

PATIENT

DRUGS (1)
  1. GENOTROPIN 12 MG [Suspect]
     Active Substance: SOMATROPIN
     Dosage: UNK
     Dates: start: 2013, end: 2013

REACTIONS (1)
  - Asthma [Unknown]
